FAERS Safety Report 7812597-X (Version None)
Quarter: 2011Q4

REPORT INFORMATION
  Report Type: 
  Country: None (occurrence: None)
  Receive Date: 20111013
  Receipt Date: 20110928
  Transmission Date: 20120403
  Serious: Yes (Life-Threatening, Hospitalization)
  Sender: FDA-Public Use
  Company Number: GB-WATSON-2011-15703

PATIENT
  Age: 61 Year
  Sex: Female
  Weight: 78 kg

DRUGS (7)
  1. AMOXICILLIN AND CLAVULANATE POTASSIUM [Suspect]
     Indication: PROPHYLAXIS
     Dosage: 1.2 G, UNKNOWN
     Route: 042
     Dates: start: 20110915
  2. MORPHINE SULFATE [Concomitant]
     Indication: PRODUCT USED FOR UNKNOWN INDICATION
     Route: 065
  3. IBUPROFEN [Concomitant]
     Indication: PRODUCT USED FOR UNKNOWN INDICATION
     Dosage: UNK
     Route: 065
  4. ROCURONIUM (UNKNOWN) [Suspect]
     Indication: NEUROMUSCULAR BLOCKADE
     Dosage: UNK
     Route: 042
     Dates: start: 20110915
  5. PROPOFOL [Suspect]
     Indication: INDUCTION OF ANAESTHESIA
     Dosage: UNK
     Route: 065
     Dates: start: 20110915
  6. PARACETAMOL [Concomitant]
     Indication: PRODUCT USED FOR UNKNOWN INDICATION
     Route: 065
  7. FENTANYL (UNKNOWN) [Suspect]
     Indication: INDUCTION OF ANAESTHESIA
     Dosage: UNK
     Route: 065
     Dates: start: 20110915

REACTIONS (1)
  - ANAPHYLACTIC REACTION [None]
